FAERS Safety Report 5492332-3 (Version None)
Quarter: 2007Q4

REPORT INFORMATION
  Report Type: 
  Country: None (occurrence: None)
  Receive Date: 20071022
  Receipt Date: 20071015
  Transmission Date: 20080405
  Serious: Yes (Death)
  Sender: FDA-Public Use
  Company Number: IE-AVENTIS-200714266EU

PATIENT
  Age: 85 Year
  Sex: Male
  Weight: 74.8 kg

DRUGS (16)
  1. CLEXANE [Suspect]
     Indication: PROPHYLAXIS
     Route: 058
     Dates: start: 20070813, end: 20070821
  2. CLEXANE [Suspect]
     Route: 058
     Dates: start: 20070822, end: 20070823
  3. CLEXANE [Suspect]
     Route: 058
     Dates: start: 20070813, end: 20070821
  4. CLEXANE [Suspect]
     Route: 058
     Dates: start: 20070822, end: 20070823
  5. CLEXANE [Suspect]
     Route: 058
     Dates: start: 20070813, end: 20070821
  6. CLEXANE [Suspect]
     Route: 058
     Dates: start: 20070822, end: 20070823
  7. ASPIRIN [Concomitant]
  8. SIMVASTATIN [Concomitant]
  9. ALLOPURINOL [Concomitant]
  10. BICALUTAMIDE [Concomitant]
  11. AMLODIPINE [Concomitant]
  12. COMBIVENT                          /01261001/ [Concomitant]
  13. PULMICORT [Concomitant]
     Dosage: DOSE: 0.5 MD
  14. BETOPTIC [Concomitant]
     Route: 047
  15. XALATAN [Concomitant]
     Route: 047
  16. BISOPROLOL FUMARATE [Concomitant]

REACTIONS (3)
  - CHEST PAIN [None]
  - HAEMOTHORAX [None]
  - PLEURAL HAEMORRHAGE [None]
